FAERS Safety Report 7442462-1 (Version None)
Quarter: 2011Q2

REPORT INFORMATION
  Report Type: 
  Country: None (occurrence: None)
  Receive Date: 20110426
  Receipt Date: 20110426
  Transmission Date: 20111010
  Serious: Yes (Hospitalization)
  Sender: FDA-Public Use
  Company Number: None

PATIENT
  Age: 63 Year
  Sex: Female

DRUGS (2)
  1. DILTIAZEM [Concomitant]
  2. AMIODARONE HCL [Suspect]
     Indication: ATRIAL FIBRILLATION
     Dosage: 1 MG/MIN X6 HOURS IV
     Route: 042
     Dates: start: 20110418, end: 20110418

REACTIONS (4)
  - HEART RATE ABNORMAL [None]
  - MEDICAL DEVICE COMPLICATION [None]
  - DEVICE MALFUNCTION [None]
  - BRADYCARDIA [None]
